FAERS Safety Report 8990292 (Version 6)
Quarter: 2013Q1

REPORT INFORMATION
  Report Type: Spontaneous
  Country: JP (occurrence: JP)
  Receive Date: 20121228
  Receipt Date: 20130115
  Transmission Date: 20140127
  Serious: Yes (Death)
  Sender: FDA-Public Use
  Company Number: JP-PFIZER INC-2012329928

PATIENT
  Age: 63 Year
  Sex: Male
  Weight: 83 kg

DRUGS (1)
  1. CELECOX [Suspect]
     Indication: PROCEDURAL PAIN
     Dosage: 200 MG, 2X/DAY
     Route: 048
     Dates: start: 20121208, end: 20121209

REACTIONS (2)
  - Pulmonary infarction [Fatal]
  - Shock [Fatal]
